FAERS Safety Report 5043645-0 (Version None)
Quarter: 2006Q2

REPORT INFORMATION
  Report Type: 
  Country: None (occurrence: None)
  Receive Date: 20060628
  Receipt Date: 20060607
  Transmission Date: 20061013
  Serious: Yes (Other)
  Sender: FDA-Public Use
  Company Number: US200603005349

PATIENT
  Age: 43 Year
  Sex: Female

DRUGS (4)
  1. HUMALOG [Suspect]
     Indication: DIABETES MELLITUS
     Dates: start: 19970101
  2. LIPITOR [Concomitant]
  3. CHLORAZIN (CYCLOGUANIL EMBONATE) [Concomitant]
  4. ZOLOFT [Concomitant]

REACTIONS (4)
  - CEREBROVASCULAR ACCIDENT [None]
  - DEPRESSION [None]
  - HYPOACUSIS [None]
  - MANIA [None]
